FAERS Safety Report 6546699-5 (Version None)
Quarter: 2010Q1

REPORT INFORMATION
  Report Type: 
  Country: None (occurrence: None)
  Receive Date: 20100122
  Receipt Date: 20100112
  Transmission Date: 20100710
  Serious: Yes (Death, Hospitalization)
  Sender: FDA-Public Use
  Company Number: US-PFIZER INC-2009260309

PATIENT
  Sex: Female

DRUGS (1)
  1. SUTENT [Suspect]
     Indication: METASTATIC RENAL CELL CARCINOMA
     Dosage: 37.5 MG, 1X/DAY 4WEEKS ON 2 WKS OFF
     Dates: start: 20090806

REACTIONS (3)
  - BLOOD URINE PRESENT [None]
  - DEATH [None]
  - FAECES DISCOLOURED [None]
